FAERS Safety Report 4688497-3 (Version None)
Quarter: 2005Q2

REPORT INFORMATION
  Report Type: 
  Country: None (occurrence: None)
  Receive Date: 20050613
  Receipt Date: 20050602
  Transmission Date: 20051028
  Serious: Yes (Hospitalization, Other)
  Sender: FDA-Public Use
  Company Number: US-JNJFOC-20050500190

PATIENT
  Sex: Male
  Weight: 83.69 kg

DRUGS (6)
  1. REMICADE [Suspect]
     Route: 042
  2. REMICADE [Suspect]
     Route: 042
  3. REMICADE [Suspect]
     Indication: CROHN'S DISEASE
     Route: 042
  4. SOLU-MEDROL [Concomitant]
     Indication: PREMEDICATION
  5. TYLENOL (CAPLET) [Concomitant]
  6. ANTIHISTAMINE [Concomitant]
     Indication: PREMEDICATION

REACTIONS (4)
  - INFUSION RELATED REACTION [None]
  - STAPHYLOCOCCAL INFECTION [None]
  - URETERIC OPERATION [None]
  - URTICARIA [None]
